FAERS Safety Report 8443045-7 (Version None)
Quarter: 2012Q2

REPORT INFORMATION
  Report Type: 
  Country: None (occurrence: None)
  Receive Date: 20120615
  Receipt Date: 20120613
  Transmission Date: 20120825
  Serious: Yes (Death, Other)
  Sender: FDA-Public Use
  Company Number: PHHY2012JP047973

PATIENT
  Age: 49 Year
  Sex: Female
  Weight: 59 kg

DRUGS (12)
  1. CARBOPLATIN [Suspect]
     Indication: METASTASES TO CENTRAL NERVOUS SYSTEM
     Dosage: AUC 4
  2. EPIRUBICIN HYDROCHLORIDE [Suspect]
     Indication: MALIGNANT PERITONEAL NEOPLASM
     Dosage: 30 MG/M2, UNK
  3. MITOMYCIN [Suspect]
     Dosage: 7 MG/M2, UNK
  4. CARBOPLATIN [Suspect]
     Indication: MALIGNANT PERITONEAL NEOPLASM
     Dosage: AUC 5
  5. DOCETAXEL [Suspect]
     Indication: MALIGNANT PERITONEAL NEOPLASM
     Dosage: 70 MG/M2, UNK
  6. CYCLOPHOSPHAMIDE [Suspect]
     Indication: METASTASES TO CENTRAL NERVOUS SYSTEM
     Dosage: 600 MG/M2, UNK
  7. NEDAPLATIN [Suspect]
     Indication: MALIGNANT PERITONEAL NEOPLASM
     Dosage: 60 MG/M2, UNK
  8. NEDAPLATIN [Suspect]
     Dosage: 12 MG/M2, UNK
  9. CYCLOPHOSPHAMIDE [Suspect]
     Indication: MALIGNANT PERITONEAL NEOPLASM
     Dosage: 400 MG/M2, UNK
  10. IRINOTECAN HYDROCHLORIDE [Suspect]
     Dosage: 120 MG/M2, UNK
  11. DOXORUBICIN HCL [Suspect]
     Dosage: 40 MG/M2, UNK
  12. PACLITAXEL [Suspect]
     Indication: MALIGNANT PERITONEAL NEOPLASM
     Dosage: 175 MG/M2, UNK

REACTIONS (8)
  - DRUG INEFFECTIVE [None]
  - NEOPLASM MALIGNANT [None]
  - NEUROLOGICAL SYMPTOM [None]
  - METASTASES TO MENINGES [None]
  - MOTOR DYSFUNCTION [None]
  - DIZZINESS [None]
  - DEAFNESS [None]
  - INFREQUENT BOWEL MOVEMENTS [None]
